FAERS Safety Report 6597105-6 (Version None)
Quarter: 2010Q1

REPORT INFORMATION
  Report Type: 
  Country: None (occurrence: None)
  Receive Date: 20100219
  Receipt Date: 20100219
  Transmission Date: 20100710
  Serious: Yes (Hospitalization)
  Sender: FDA-Public Use
  Company Number: None

PATIENT
  Age: 58 Year
  Sex: Male
  Weight: 119 kg

DRUGS (2)
  1. LISINOPRIL [Suspect]
     Indication: HYPERTENSION
     Dosage: 2.5 MG EVERY DAY PO
     Route: 048
     Dates: start: 20061012, end: 20091023
  2. LISINOPRIL [Suspect]
     Indication: RENAL DISORDER
     Dosage: 2.5 MG EVERY DAY PO
     Route: 048
     Dates: start: 20061012, end: 20091023

REACTIONS (1)
  - EPIGLOTTITIS [None]
